FAERS Safety Report 19508966 (Version 1)
Quarter: 2021Q3

REPORT INFORMATION
  Report Type: Spontaneous
  Country: GB (occurrence: GB)
  Receive Date: 20210708
  Receipt Date: 20210708
  Transmission Date: 20211014
  Serious: Yes (Death, Life-Threatening)
  Sender: FDA-Public Use
  Company Number: GB-MYLANLABS-2021M1039494

PATIENT
  Age: 96 Year
  Sex: Female
  Weight: 51.71 kg

DRUGS (7)
  1. SIMVASTATIN. [Concomitant]
     Active Substance: SIMVASTATIN
  2. CINNARIZINE [Concomitant]
     Active Substance: CINNARIZINE
  3. BISOPROLOL [Concomitant]
     Active Substance: BISOPROLOL
  4. WARFARIN [Concomitant]
     Active Substance: WARFARIN
  5. ALLOPURINOL. [Concomitant]
     Active Substance: ALLOPURINOL
  6. AMLODIPINE [Suspect]
     Active Substance: AMLODIPINE BESYLATE
     Indication: HYPERTENSION
     Dosage: 5 MILLIGRAM, QD (IN THE MORNING)
     Route: 048
     Dates: start: 20200916, end: 20200918
  7. DIGOXIN. [Concomitant]
     Active Substance: DIGOXIN

REACTIONS (2)
  - Anaphylactic reaction [Not Recovered/Not Resolved]
  - Death [Fatal]

NARRATIVE: CASE EVENT DATE: 20200918
